FAERS Safety Report 6959566-X (Version None)
Quarter: 2010Q3

REPORT INFORMATION
  Report Type: 
  Country: None (occurrence: None)
  Receive Date: 20100830
  Receipt Date: 20100813
  Transmission Date: 20110219
  Serious: Yes (Hospitalization)
  Sender: FDA-Public Use
  Company Number: 2010003475

PATIENT
  Age: 66 Year
  Sex: Female

DRUGS (11)
  1. ERLOTINIB HYDROCHLORIDE [Suspect]
     Indication: LUNG NEOPLASM MALIGNANT
     Dosage: (150 MG,QD), ORAL , (100 MG, DAILY), ORAL
     Route: 048
     Dates: start: 20100730
  2. ERLOTINIB HYDROCHLORIDE [Suspect]
     Indication: LUNG NEOPLASM MALIGNANT
     Dosage: (150 MG,QD), ORAL , (100 MG, DAILY), ORAL
     Route: 048
     Dates: start: 20100818
  3. CLEOCIN (CLINDAMYCIN HYDROCHLORIDE) (OINTMENT) [Concomitant]
     Indication: RASH
     Dosage: TOPICAL
     Dates: start: 20100808, end: 20100809
  4. AMLODIPINE [Concomitant]
  5. HYDROCHLOROTHIAZIDE [Concomitant]
  6. MULTIVITAMIN (NOS) [Concomitant]
  7. CALAMINE LOTION (CALAMINE LOTION) [Concomitant]
  8. DOXYCYCLINE [Concomitant]
  9. LOPERAMIDE (LOPERAMIDE) [Concomitant]
  10. BENADRYL [Concomitant]
  11. PREDNISONE [Concomitant]

REACTIONS (4)
  - ACNE [None]
  - BLOOD PRESSURE INCREASED [None]
  - HAEMOGLOBIN DECREASED [None]
  - HYPERSENSITIVITY [None]
